APPROVED DRUG PRODUCT: LOMUSTINE
Active Ingredient: LOMUSTINE
Strength: 40MG
Dosage Form/Route: CAPSULE;ORAL
Application: A219265 | Product #002 | TE Code: AB
Applicant: CARNEGIE PHARMACEUTICALS LLC
Approved: Oct 27, 2025 | RLD: No | RS: No | Type: RX